FAERS Safety Report 18290578 (Version 2)
Quarter: 2020Q3

REPORT INFORMATION
  Report Type: Spontaneous
  Country: CN (occurrence: CN)
  Receive Date: 20200921
  Receipt Date: 20200922
  Transmission Date: 20201103
  Serious: Yes (Life-Threatening, Hospitalization, Other)
  Sender: FDA-Public Use
  Company Number: CN-JNJFOC-20200916700

PATIENT
  Age: 19 Month
  Sex: Male
  Weight: 10.5 kg

DRUGS (5)
  1. TOPAMAX [Suspect]
     Active Substance: TOPIRAMATE
     Indication: SEIZURE
     Route: 048
     Dates: start: 20200828, end: 20200830
  2. MEROPEN                            /01250501/ [Suspect]
     Active Substance: MEROPENEM
     Indication: INFECTION
     Route: 041
     Dates: start: 20200825, end: 20200828
  3. TOPAMAX [Suspect]
     Active Substance: TOPIRAMATE
     Route: 048
     Dates: start: 20200831, end: 20200905
  4. FOSFOMYCIN                         /00552503/ [Concomitant]
     Indication: INFECTION
     Route: 041
     Dates: start: 20200823, end: 20200825
  5. FOSFOMYCIN                         /00552503/ [Concomitant]
     Route: 041
     Dates: start: 20200828, end: 20200904

REACTIONS (5)
  - Hepatic function abnormal [Recovering/Resolving]
  - Product use issue [Unknown]
  - Drug reaction with eosinophilia and systemic symptoms [Recovering/Resolving]
  - Off label use [Unknown]
  - Erythema multiforme [Recovering/Resolving]

NARRATIVE: CASE EVENT DATE: 20200903
